FAERS Safety Report 4313552-7 (Version None)
Quarter: 2004Q1

REPORT INFORMATION
  Report Type: 
  Country: None (occurrence: None)
  Receive Date: 20040304
  Receipt Date: 20040217
  Transmission Date: 20041129
  Serious: Yes (Other)
  Sender: FDA-Public Use
  Company Number: USA021022960

PATIENT
  Age: 57 Year
  Sex: Male
  Weight: 140 kg

DRUGS (2)
  1. HUMULIN N [Suspect]
     Indication: DIABETES MELLITUS
     Dates: start: 19920101
  2. METFORMIN HCL [Concomitant]

REACTIONS (8)
  - ACCIDENT AT WORK [None]
  - BLOOD GLUCOSE FLUCTUATION [None]
  - GASTRIC DISORDER [None]
  - KNEE ARTHROPLASTY [None]
  - LIMB INJURY [None]
  - POST PROCEDURAL COMPLICATION [None]
  - VARICOSE VEINS LIGATION [None]
  - WEIGHT INCREASED [None]
